FAERS Safety Report 8153228-1 (Version None)
Quarter: 2012Q1

REPORT INFORMATION
  Report Type: 
  Country: None (occurrence: None)
  Receive Date: 20120221
  Receipt Date: 20120216
  Transmission Date: 20120608
  Serious: Yes (Hospitalization)
  Sender: FDA-Public Use
  Company Number: HK-SANOFI-AVENTIS-200718166GDDC

PATIENT
  Age: 44 Year
  Sex: Female

DRUGS (24)
  1. METOCLOPRAMIDE [Concomitant]
     Dosage: DOSE AS USED: 10 MG 15-30 MINS BEFORE MEALS THREE TIMES A DAY
     Route: 048
     Dates: start: 20070712, end: 20070801
  2. METOCLOPRAMIDE [Concomitant]
     Dosage: DOSE AS USED: 10 MG 15-30 MINS BEFORE MEALS THREE TIMES A DAY
     Route: 048
     Dates: start: 20070511, end: 20070524
  3. FILGRASTIM [Concomitant]
     Route: 058
     Dates: start: 20070511, end: 20070517
  4. DEXAMETHASONE [Concomitant]
     Dosage: DOSE AS USED: TWO 4 MG TABLETS WITH/AFTER MEALS
     Route: 048
     Dates: start: 20070621, end: 20070623
  5. DOCETAXEL [Suspect]
     Dosage: DOSE UNIT: 75 MG/M**2
     Route: 042
     Dates: start: 20070713, end: 20070713
  6. FILGRASTIM [Concomitant]
     Route: 058
     Dates: start: 20070716, end: 20070722
  7. FILGRASTIM [Concomitant]
     Route: 058
     Dates: start: 20070625, end: 20070701
  8. DEXAMETHASONE [Concomitant]
     Dosage: DOSE AS USED: TWO 4 MG TABLETS WITH/AFTER MEALS
     Route: 048
     Dates: start: 20070511, end: 20070513
  9. TAMOXIFEN [Concomitant]
     Dosage: DOSE UNIT: 20 MG
     Dates: start: 20080222
  10. CIPROFLOXACIN [Concomitant]
     Dosage: DOSE AS USED: TWO 250 MG TABLETS
     Route: 048
     Dates: start: 20070626, end: 20070705
  11. FILGRASTIM [Concomitant]
     Route: 058
     Dates: start: 20070531, end: 20070606
  12. DEXAMETHASONE [Concomitant]
     Dosage: DOSE AS USED: TWO 4 MG TABLETS WITH/AFTER MEALS
     Route: 048
     Dates: start: 20070712, end: 20070714
  13. FOLIC ACID [Concomitant]
     Route: 048
     Dates: start: 20070712, end: 20070801
  14. CIPROFLOXACIN [Concomitant]
     Dosage: DOSE AS USED: TWO 250 MG TABLETS
     Route: 048
     Dates: start: 20070717, end: 20070726
  15. FAMOTIDINE [Concomitant]
     Route: 048
     Dates: start: 20070712, end: 20070714
  16. METOCLOPRAMIDE [Concomitant]
     Dosage: DOSE AS USED: 10 MG 15-30 MINS BEFORE MEALS THREE TIMES A DAY
     Route: 048
     Dates: start: 20070531, end: 20070606
  17. ADRIAMYCIN PFS [Suspect]
     Dosage: DOSE UNIT: 57 MG/M**2
     Route: 042
     Dates: start: 20070713, end: 20070713
  18. CYCLOPHOSPHAMIDE [Suspect]
     Dosage: DOSE UNIT: 500 MG/M**2
     Route: 042
     Dates: start: 20070713, end: 20070713
  19. CIPROFLOXACIN [Concomitant]
     Dosage: DOSE AS USED: TWO 250 MG TABLETS
     Route: 048
     Dates: start: 20070605, end: 20070614
  20. DEXAMETHASONE [Concomitant]
     Dosage: DOSE AS USED: TWO 4 MG TABLETS WITH/AFTER MEALS
     Route: 048
     Dates: start: 20070531, end: 20070602
  21. FAMOTIDINE [Concomitant]
     Route: 048
     Dates: start: 20070621, end: 20070623
  22. FAMOTIDINE [Concomitant]
     Route: 048
     Dates: start: 20070531, end: 20070602
  23. CIPROFLOXACIN [Concomitant]
     Dosage: DOSE AS USED: TWO 250 MG TABLETS
     Route: 048
     Dates: start: 20070511, end: 20070520
  24. FAMOTIDINE [Concomitant]
     Route: 048
     Dates: start: 20070511, end: 20070513

REACTIONS (2)
  - SPLENOMEGALY [None]
  - GASTROENTERITIS [None]
